FAERS Safety Report 24397401 (Version 4)
Quarter: 2025Q3

REPORT INFORMATION
  Report Type: Spontaneous
  Country: US (occurrence: US)
  Receive Date: 20241004
  Receipt Date: 20250922
  Transmission Date: 20251021
  Serious: No
  Sender: SANOFI AVENTIS
  Company Number: US-SA-2024SA285217

PATIENT
  Age: 4 Year
  Sex: Male
  Weight: 18.18 kg

DRUGS (5)
  1. NEXVIAZYME [Suspect]
     Active Substance: AVALGLUCOSIDASE ALFA-NGPT
     Indication: Glycogen storage disease type II
     Dosage: 600 MG, QOW
     Route: 042
     Dates: start: 202310
  2. SODIUM CHLORIDE [Concomitant]
     Active Substance: SODIUM CHLORIDE
  3. DEXTROSE [Concomitant]
     Active Substance: DEXTROSE MONOHYDRATE
  4. HEPARIN [Concomitant]
     Active Substance: HEPARIN SODIUM
  5. STERILE WATER [Concomitant]
     Active Substance: WATER

REACTIONS (3)
  - Rhinovirus infection [Unknown]
  - Heart rate increased [Unknown]
  - Dyspnoea [Unknown]

NARRATIVE: CASE EVENT DATE: 20240913
